FAERS Safety Report 6449874-3 (Version None)
Quarter: 2009Q4

REPORT INFORMATION
  Report Type: 
  Country: None (occurrence: None)
  Receive Date: 20091123
  Receipt Date: 20091112
  Transmission Date: 20100525
  Serious: Yes (Other)
  Sender: FDA-Public Use
  Company Number: US-BIOGENIDEC-2005BI015698

PATIENT
  Age: 51 Year
  Sex: Female

DRUGS (3)
  1. AVONEX [Suspect]
     Indication: MULTIPLE SCLEROSIS
     Route: 030
     Dates: start: 20010801, end: 20050101
  2. MULTI-VITAMINS [Concomitant]
  3. AMANTADINE [Concomitant]

REACTIONS (4)
  - MEMORY IMPAIRMENT [None]
  - OCULAR SARCOIDOSIS [None]
  - PERIPHLEBITIS [None]
  - VISUAL IMPAIRMENT [None]
